FAERS Safety Report 23578079 (Version 2)
Quarter: 2024Q2

REPORT INFORMATION
  Report Type: Spontaneous
  Country: US (occurrence: US)
  Receive Date: 20240229
  Receipt Date: 20240408
  Transmission Date: 20240716
  Serious: No
  Sender: FDA-Public Use
  Company Number: US-GSK-US2024AMR023927

PATIENT
  Sex: Female

DRUGS (1)
  1. FLUTICASONE PROPIONATE [Suspect]
     Active Substance: FLUTICASONE PROPIONATE
     Indication: Product used for unknown indication
     Dosage: UNK (12G/120 METERED)

REACTIONS (5)
  - Wrong technique in device usage process [Unknown]
  - Product dose omission issue [Unknown]
  - Product administered to patient of inappropriate age [Unknown]
  - Product storage error [Unknown]
  - Product complaint [Unknown]
